FAERS Safety Report 24844782 (Version 1)
Quarter: 2025Q1

REPORT INFORMATION
  Report Type: Spontaneous
  Country: US (occurrence: US)
  Receive Date: 20250115
  Receipt Date: 20250115
  Transmission Date: 20250409
  Serious: No
  Sender: BRISTOL-MYERS SQUIBB COMPANY
  Company Number: US-BRISTOL-MYERS SQUIBB COMPANY-2025-003534

PATIENT
  Age: 54 Year
  Sex: Female
  Weight: 59.87 kg

DRUGS (2)
  1. KENALOG [Suspect]
     Active Substance: TRIAMCINOLONE ACETONIDE
     Indication: Dermatitis contact
     Dates: start: 20241009
  2. HYDROXYCHLOROQUINE DIPHOSPHATE [Suspect]
     Active Substance: HYDROXYCHLOROQUINE DIPHOSPHATE
     Indication: Autoimmune disorder

REACTIONS (8)
  - Off label use [Unknown]
  - Feeling hot [Unknown]
  - Musculoskeletal stiffness [Unknown]
  - Skin indentation [Unknown]
  - Scar [Unknown]
  - Erythema [Unknown]
  - Swelling [Unknown]
  - Skin discolouration [Unknown]

NARRATIVE: CASE EVENT DATE: 20241010
